FAERS Safety Report 4796854-X (Version None)
Quarter: 2005Q4

REPORT INFORMATION
  Report Type: 
  Country: None (occurrence: None)
  Receive Date: 20051013
  Receipt Date: 20051006
  Transmission Date: 20060501
  Serious: Yes (Other)
  Sender: FDA-Public Use
  Company Number: PHNR2005AU01492

PATIENT
  Age: 47 Year
  Sex: Male

DRUGS (4)
  1. TRILEPTAL [Suspect]
     Dosage: 150 MG, BID
  2. LAMICTAL [Concomitant]
     Dosage: 100 MG, QID
  3. KARVEA [Concomitant]
     Dosage: 150 MG, QD
  4. EFFEXOR XR [Concomitant]
     Dosage: 150 MG, BID

REACTIONS (1)
  - HYPOGAMMAGLOBULINAEMIA [None]
